FAERS Safety Report 7359325-2 (Version None)
Quarter: 2011Q1

REPORT INFORMATION
  Report Type: 
  Country: None (occurrence: None)
  Receive Date: 20110317
  Receipt Date: 20091021
  Transmission Date: 20110831
  Serious: No
  Sender: FDA-Public Use
  Company Number: US-PFIZER INC-2009286311

PATIENT
  Sex: Female

DRUGS (13)
  1. CRESTOR [Concomitant]
     Dosage: UNK
  2. PLAVIX [Concomitant]
     Dosage: UNK
  3. PROMETHAZINE [Concomitant]
     Dosage: UNK
  4. NORVASC [Suspect]
     Dosage: UNK
  5. DILTIAZEM HCL [Suspect]
     Dosage: UNK
  6. GABAPENTIN [Concomitant]
     Dosage: UNK
  7. GLUCOFAGE [Concomitant]
     Dosage: UNK
  8. PROTONIX [Concomitant]
     Dosage: UNK
  9. BENTYL [Concomitant]
     Dosage: UNK
  10. LAMICTAL [Concomitant]
     Dosage: UNK
  11. ALPRAZOLAM [Concomitant]
     Dosage: UNK
  12. MIRALAX [Suspect]
     Indication: CONSTIPATION
     Dosage: UNK,3X/DAY
     Route: 048
  13. LEVOTHYROXINE [Concomitant]
     Dosage: UNK

REACTIONS (1)
  - GENERALISED OEDEMA [None]
